FAERS Safety Report 11031687 (Version 2)
Quarter: 2015Q2

REPORT INFORMATION
  Report Type: Spontaneous
  Country: CA (occurrence: None)
  Receive Date: 20150413
  Receipt Date: 20150424
  Transmission Date: 20150821
  Serious: Yes (Death, Other)
  Sender: FDA-Public Use
  Company Number: 201504000107

PATIENT
  Age: 64 Year
  Sex: Female

DRUGS (2)
  1. DILAUDID [Concomitant]
     Active Substance: HYDROMORPHONE HYDROCHLORIDE
  2. INOMAX [Suspect]
     Active Substance: NITRIC OXIDE
     Indication: OXYGEN SATURATION DECREASED
     Dosage: 40 PPM, CONTINUOUS
     Route: 055
     Dates: start: 20150327, end: 20150327

REACTIONS (5)
  - Pulmonary embolism [None]
  - Pulmonary haemorrhage [None]
  - Off label use [None]
  - Cardiac arrest [None]
  - Stupor [None]

NARRATIVE: CASE EVENT DATE: 20150327
